FAERS Safety Report 8301759-3 (Version None)
Quarter: 2012Q1

REPORT INFORMATION
  Report Type: 
  Country: None (occurrence: None)
  Receive Date: 20120326
  Receipt Date: 20120130
  Transmission Date: 20120608
  Serious: Yes (Hospitalization, Other)
  Sender: FDA-Public Use
  Company Number: PHHY2010US41696

PATIENT
  Age: 81 Year
  Sex: Male
  Weight: 118 kg

DRUGS (12)
  1. LASIX [Concomitant]
  2. TASIGNA [Suspect]
     Indication: MYELOID LEUKAEMIA
     Dosage: 400 MG, Q12H, ORAL ; 200 MG, Q12H, ORAL ; 400 MG, EOD, ORAL
     Route: 048
     Dates: start: 20091201
  3. TASIGNA [Suspect]
     Indication: MYELOID LEUKAEMIA
     Dosage: 400 MG, Q12H, ORAL ; 200 MG, Q12H, ORAL ; 400 MG, EOD, ORAL
     Route: 048
     Dates: start: 20090412
  4. ASPIRIN [Concomitant]
  5. ALLOPURINOL [Concomitant]
  6. KLOR-CON [Concomitant]
  7. WARFARIN SODIUM [Concomitant]
  8. ALDACTONE [Concomitant]
  9. MULTIVITAMIN [Concomitant]
  10. TOPROL-XL [Concomitant]
  11. DIOVAN [Concomitant]
  12. SPIRONOLACTONE [Concomitant]

REACTIONS (5)
  - PULMONARY HYPERTENSION [None]
  - THROMBOCYTOPENIA [None]
  - ANAEMIA [None]
  - DYSPNOEA [None]
  - RIGHT VENTRICULAR FAILURE [None]
